FAERS Safety Report 9543672 (Version 1)
Quarter: 2013Q3

REPORT INFORMATION
  Report Type: Report from Study
  Country: JP (occurrence: JP)
  Receive Date: 20130923
  Receipt Date: 20130923
  Transmission Date: 20140515
  Serious: Yes (Hospitalization)
  Sender: FDA-Public Use
  Company Number: JP-TAKEDA-2013TJP000989

PATIENT
  Age: 79 Year
  Sex: Male
  Weight: 64 kg

DRUGS (9)
  1. PIOGLITAZONE [Suspect]
  2. ACTOS [Suspect]
     Dosage: 15 MG, UNK
     Route: 048
     Dates: start: 20110301, end: 20110901
  3. ACTOS [Suspect]
     Route: 048
  4. NOVORAPID 30 MIX [Concomitant]
     Indication: TYPE 2 DIABETES MELLITUS
     Route: 042
     Dates: end: 20110619
  5. NOVORAPID 30 MIX [Concomitant]
     Route: 042
     Dates: start: 20110620, end: 20110901
  6. METGLUCO [Concomitant]
     Indication: TYPE 2 DIABETES MELLITUS
     Route: 048
     Dates: end: 20110901
  7. PLAVIX [Concomitant]
     Route: 048
  8. LIPITOR [Concomitant]
     Route: 048
  9. ARTIST [Concomitant]
     Route: 048

REACTIONS (1)
  - Dementia Alzheimer^s type [Not Recovered/Not Resolved]
